FAERS Safety Report 13534300 (Version 1)
Quarter: 2017Q2

REPORT INFORMATION
  Report Type: Spontaneous
  Country: US (occurrence: US)
  Receive Date: 20170510
  Receipt Date: 20170510
  Transmission Date: 20170830
  Serious: Yes (Other)
  Sender: FDA-Public Use
  Company Number: US-ASTRAZENECA-2017SE47995

PATIENT
  Sex: Female

DRUGS (2)
  1. ESOMEPRAZOLE MAGNESIUM. [Suspect]
     Active Substance: ESOMEPRAZOLE MAGNESIUM
     Indication: HYPERCHLORHYDRIA
     Dosage: GENERIC, UNK
     Route: 048
     Dates: start: 2007, end: 2013
  2. OMEPRAZOLE. [Suspect]
     Active Substance: OMEPRAZOLE
     Indication: HYPERCHLORHYDRIA
     Dosage: GENERIC, UNK
     Route: 048
     Dates: start: 2007, end: 2013

REACTIONS (2)
  - Acute kidney injury [Unknown]
  - Renal injury [Unknown]
